FAERS Safety Report 15523857 (Version 1)
Quarter: 2018Q4

REPORT INFORMATION
  Report Type: Spontaneous
  Country: US (occurrence: US)
  Receive Date: 20181019
  Receipt Date: 20181019
  Transmission Date: 20190205
  Serious: Yes (Death, Other)
  Sender: FDA-Public Use
  Company Number: US-PFM-2018-12564

PATIENT

DRUGS (2)
  1. PROPRANOLOL [Suspect]
     Active Substance: PROPRANOLOL HYDROCHLORIDE
     Indication: BASEDOW^S DISEASE
     Dosage: UNK, UNKNOWN
     Route: 065
  2. POTASSIUM IODIDE. [Suspect]
     Active Substance: POTASSIUM IODIDE
     Indication: BASEDOW^S DISEASE
     Dosage: UNK UNK, UNKNOWN
     Route: 065

REACTIONS (10)
  - Thyrotoxic crisis [Fatal]
  - Off label use [Unknown]
  - Product administered to patient of inappropriate age [Unknown]
  - Mental status changes [Fatal]
  - Disseminated intravascular coagulation [Fatal]
  - Gastrointestinal haemorrhage [Fatal]
  - Multiple organ dysfunction syndrome [Fatal]
  - Product use in unapproved indication [Unknown]
  - Respiratory distress [Fatal]
  - Hypotension [Fatal]
